FAERS Safety Report 20845556 (Version 1)
Quarter: 2022Q2

REPORT INFORMATION
  Report Type: Spontaneous
  Country: CN (occurrence: CN)
  Receive Date: 20220518
  Receipt Date: 20220518
  Transmission Date: 20220720
  Serious: No
  Sender: FDA-Public Use
  Company Number: CN-LUPIN PHARMACEUTICALS INC.-2022-07073

PATIENT
  Age: 18 Year
  Sex: Female
  Weight: 41 kg

DRUGS (2)
  1. METFORMIN [Suspect]
     Active Substance: METFORMIN HYDROCHLORIDE
     Indication: Werner^s syndrome
     Dosage: 0.5 GRAM, TID
     Route: 065
  2. PIOGLITAZONE HYDROCHLORIDE [Concomitant]
     Active Substance: PIOGLITAZONE HYDROCHLORIDE
     Indication: Werner^s syndrome
     Dosage: 30 MG, QD
     Route: 065

REACTIONS (1)
  - Gastrointestinal disorder [Unknown]
